FAERS Safety Report 9912043 (Version 1)
Quarter: 2014Q1

REPORT INFORMATION
  Report Type: Spontaneous
  Country: US (occurrence: US)
  Receive Date: 20140219
  Receipt Date: 20140219
  Transmission Date: 20141002
  Serious: Yes (Hospitalization, Other)
  Sender: FDA-Public Use
  Company Number: US-BAXTER-2014BAX007279

PATIENT
  Age: 23 Year
  Sex: Female

DRUGS (3)
  1. METRONIDAZOLE INJECTION, USP [Suspect]
     Indication: PELVIC INFLAMMATORY DISEASE
     Route: 065
  2. CEFTRIAXONE [Suspect]
     Indication: PRODUCT USED FOR UNKNOWN INDICATION
     Route: 030
  3. DOXYCYCLINE [Suspect]
     Indication: PRODUCT USED FOR UNKNOWN INDICATION
     Route: 048

REACTIONS (1)
  - Acquired porphyria [Recovering/Resolving]
